FAERS Safety Report 5883333-1 (Version None)
Quarter: 2008Q3

REPORT INFORMATION
  Report Type: 
  Country: None (occurrence: None)
  Receive Date: 20080912
  Receipt Date: 20080912
  Transmission Date: 20090109
  Serious: Yes (Death)
  Sender: FDA-Public Use
  Company Number: None

PATIENT
  Age: 61 Year
  Sex: Female
  Weight: 66.6788 kg

DRUGS (10)
  1. WARFARIN SODIUM [Suspect]
     Indication: DEEP VEIN THROMBOSIS
     Dosage: 1 MG PO
     Route: 048
  2. OXYCONTIN [Concomitant]
  3. NEXIUM [Concomitant]
  4. LEVOTHYROXINE SODIUM [Concomitant]
  5. CELEBREX [Concomitant]
  6. LIPITOR [Concomitant]
  7. PAXIL [Concomitant]
  8. ATENOLOL [Concomitant]
  9. NEURONTIN [Concomitant]
  10. ACCOLATE [Concomitant]

REACTIONS (3)
  - BRAIN HERNIATION [None]
  - DEPRESSED LEVEL OF CONSCIOUSNESS [None]
  - HAEMORRHAGE INTRACRANIAL [None]
